FAERS Safety Report 10206899 (Version 4)
Quarter: 2014Q2

REPORT INFORMATION
  Report Type: Report from Study
  Country: US (occurrence: US)
  Receive Date: 20140530
  Receipt Date: 20140612
  Transmission Date: 20141212
  Serious: Yes (Hospitalization)
  Sender: FDA-Public Use
  Company Number: US-BAYER-2013-114476

PATIENT
  Sex: Female
  Weight: 81.18 kg

DRUGS (32)
  1. REGORAFENIB [Suspect]
     Indication: COLORECTAL CANCER METASTATIC
     Dosage: 160 MG, QD, 4X40MG
     Route: 048
     Dates: start: 20120815, end: 20120830
  2. REGORAFENIB [Suspect]
     Indication: COLORECTAL CANCER METASTATIC
     Dosage: RE-ESCALATION
     Route: 048
     Dates: start: 20120912, end: 20120929
  3. REGORAFENIB [Suspect]
     Indication: COLORECTAL CANCER METASTATIC
     Dosage: RE-ESCALATION
     Route: 048
     Dates: start: 20121010, end: 20121030
  4. REGORAFENIB [Suspect]
     Indication: COLORECTAL CANCER METASTATIC
     Dosage: UNK
     Route: 048
     Dates: start: 20121107, end: 20121109
  5. REGORAFENIB [Suspect]
     Indication: COLORECTAL CANCER METASTATIC
     Dosage: RE-ESCALATION
     Route: 048
     Dates: start: 20121205, end: 20121225
  6. REGORAFENIB [Suspect]
     Indication: COLORECTAL CANCER METASTATIC
     Dosage: UNK
     Route: 048
     Dates: start: 20130102, end: 20130122
  7. REGORAFENIB [Suspect]
     Indication: COLORECTAL CANCER METASTATIC
     Dosage: RE-ESCALATION
     Route: 048
     Dates: start: 20130131, end: 20130220
  8. REGORAFENIB [Suspect]
     Indication: COLORECTAL CANCER METASTATIC
     Dosage: UNK
     Route: 048
     Dates: start: 20130227, end: 20130315
  9. REGORAFENIB [Suspect]
     Indication: COLORECTAL CANCER METASTATIC
     Dosage: RE-ESCALATION
     Route: 048
     Dates: start: 20130327, end: 20130416
  10. REGORAFENIB [Suspect]
     Indication: COLORECTAL CANCER METASTATIC
     Dosage: UNK
     Route: 048
     Dates: start: 20130424, end: 20130514
  11. REGORAFENIB [Suspect]
     Indication: COLORECTAL CANCER METASTATIC
     Dosage: RE-ESCALATION
     Route: 048
     Dates: start: 20130529, end: 20130618
  12. REGORAFENIB [Suspect]
     Indication: COLORECTAL CANCER METASTATIC
     Dosage: UNK
     Route: 048
     Dates: start: 20130626, end: 20130716
  13. REGORAFENIB [Suspect]
     Indication: COLORECTAL CANCER METASTATIC
     Dosage: UNK
     Route: 048
     Dates: start: 20130724, end: 20130813
  14. REGORAFENIB [Suspect]
     Indication: COLORECTAL CANCER METASTATIC
     Dosage: UNK
     Route: 048
     Dates: start: 20130821, end: 20130910
  15. REGORAFENIB [Suspect]
     Indication: COLORECTAL CANCER METASTATIC
     Dosage: 120 MG, DAILY (3 WEEKS ON AND 1 WEEK OFF)
     Dates: start: 20130927, end: 20131015
  16. OMEPRAZOLE [Concomitant]
     Indication: GASTROOESOPHAGEAL REFLUX DISEASE
     Dosage: 20 MG, QD
     Route: 048
     Dates: start: 20120713
  17. LYRICA [Concomitant]
     Indication: NEUROPATHY PERIPHERAL
     Dosage: 50 MG, QD
     Route: 048
     Dates: start: 20120626
  18. LYRICA [Concomitant]
     Indication: NEUROPATHY PERIPHERAL
     Dosage: 50 MG, BID
  19. NORVASC [Concomitant]
     Indication: HYPERTENSION
     Dosage: 10 MG, QD
     Route: 048
     Dates: start: 20130131
  20. NORCO [Concomitant]
     Indication: PALMAR-PLANTAR ERYTHRODYSAESTHESIA SYNDROME
     Dosage: 10/325 MG, PRN
     Route: 048
     Dates: start: 20130311
  21. NORCO [Concomitant]
     Indication: PALMAR-PLANTAR ERYTHRODYSAESTHESIA SYNDROME
     Dosage: 5 MG, Q8
  22. LABETALOL [Concomitant]
     Indication: HYPERTENSION
     Dosage: 200 MG, QD
     Route: 048
     Dates: start: 20121008
  23. LOMOTIL [DIPHENOXYLATE HYDROCHLORIDE] [Concomitant]
     Indication: DIARRHOEA
     Dosage: 2.5-0.025 MG, PRN
     Route: 048
     Dates: start: 20121025
  24. MORPHINE [Concomitant]
     Indication: PALMAR-PLANTAR ERYTHRODYSAESTHESIA SYNDROME
     Dosage: 60 MG, QD
     Route: 048
     Dates: start: 20130424
  25. MORPHINE [Concomitant]
     Indication: PALMAR-PLANTAR ERYTHRODYSAESTHESIA SYNDROME
     Dosage: 2 MG, Q4HR, PRN
     Route: 042
  26. COMPAZINE [Concomitant]
     Indication: NAUSEA
     Dosage: 10 MG, PRN
     Route: 048
     Dates: start: 20121003
  27. COMPAZINE [Concomitant]
     Indication: NAUSEA
     Dosage: 10 MG, QID
  28. LEVOTHYROXINE [Concomitant]
     Indication: HYPOTHYROIDISM
     Dosage: 25 ?G, QD
     Route: 048
     Dates: start: 20130821
  29. AMLODIPINE [Concomitant]
     Dosage: 10 MG
  30. PRILOSEC [Concomitant]
     Dosage: 20 MG, DAILY
  31. SYNTHROID [Concomitant]
     Indication: HYPOTHYROIDISM
  32. ENOXAPARIN [Concomitant]
     Indication: PROPHYLAXIS

REACTIONS (2)
  - Pneumonia [Recovered/Resolved]
  - Atrioventricular block complete [Recovered/Resolved]
